FAERS Safety Report 8308582-4 (Version None)
Quarter: 2012Q2

REPORT INFORMATION
  Report Type: 
  Country: None (occurrence: None)
  Receive Date: 20120424
  Receipt Date: 19861209
  Transmission Date: 20120825
  Serious: Yes (Hospitalization)
  Sender: FDA-Public Use
  Company Number: FR-ROCHE-7371

PATIENT
  Age: 68 Year
  Sex: Male
  Weight: 72 kg

DRUGS (2)
  1. TAGAMET [Concomitant]
     Route: 048
     Dates: start: 19850601, end: 19850830
  2. TICLID [Suspect]
     Indication: THROMBOSIS MESENTERIC VESSEL
     Route: 048
     Dates: start: 19850601, end: 19850830

REACTIONS (3)
  - LIVEDO RETICULARIS [None]
  - SEPTIC SHOCK [None]
  - BONE MARROW FAILURE [None]
